FAERS Safety Report 15270961 (Version 1)
Quarter: 2018Q3

REPORT INFORMATION
  Report Type: Spontaneous
  Country: US (occurrence: US)
  Receive Date: 20180813
  Receipt Date: 20180813
  Transmission Date: 20181010
  Serious: No
  Sender: FDA-Public Use
  Company Number: US-SA-2018SA221338

PATIENT
  Age: 45 Year
  Sex: Male

DRUGS (2)
  1. LANTUS [Suspect]
     Active Substance: INSULIN GLARGINE
     Dosage: 40 AND 30 UNITS
     Dates: start: 201703
  2. LANTUS [Suspect]
     Active Substance: INSULIN GLARGINE
     Dosage: 40 AND 30 UNITS
     Dates: start: 201703

REACTIONS (1)
  - Product quality issue [Unknown]
